FAERS Safety Report 9720088 (Version 4)
Quarter: 2014Q1

REPORT INFORMATION
  Report Type: Spontaneous
  Country: CA (occurrence: CA)
  Receive Date: 20131128
  Receipt Date: 20140122
  Transmission Date: 20141002
  Serious: Yes (Hospitalization, Other)
  Sender: FDA-Public Use
  Company Number: CA-009507513-1311CAN012509

PATIENT
  Age: 64 Year
  Sex: Female
  Weight: 55 kg

DRUGS (9)
  1. VICTRELIS [Suspect]
     Indication: HEPATITIS C
     Dosage: 2400 MG, QD
     Route: 048
     Dates: start: 20130523, end: 201311
  2. PEGASYS [Suspect]
     Indication: HEPATITIS C
     Dosage: 180 MICROGRAM, QW
     Route: 058
     Dates: start: 20130425, end: 20131125
  3. PEGASYS [Suspect]
     Dosage: 90
     Route: 065
     Dates: start: 20131113, end: 201311
  4. RIBAVIRIN [Suspect]
     Indication: HEPATITIS C
     Dosage: 1000 MG, QD
     Route: 048
     Dates: start: 20130425, end: 20131125
  5. RIBAVIRIN [Suspect]
     Dosage: 1000
     Route: 048
     Dates: start: 20130508, end: 20130530
  6. RIBAVIRIN [Suspect]
     Dosage: 800
     Route: 048
     Dates: start: 20130530, end: 20130610
  7. RIBAVIRIN [Suspect]
     Dosage: 600
     Route: 048
     Dates: start: 20130610, end: 201311
  8. ERYTHROPOIETIN [Concomitant]
     Dosage: 40000 IU, QW
     Route: 058
     Dates: start: 20130614, end: 201312
  9. INSULIN [Concomitant]
     Dosage: UNK
     Route: 065
     Dates: end: 201312

REACTIONS (37)
  - Pancytopenia [Unknown]
  - Sepsis [Unknown]
  - Ileus [Unknown]
  - Transfusion [Unknown]
  - Anaemia [Recovered/Resolved]
  - Hypoglycaemic seizure [Unknown]
  - Blood creatinine increased [Unknown]
  - Abdominal discomfort [Unknown]
  - Nausea [Unknown]
  - Vomiting [Unknown]
  - Confusional state [Unknown]
  - Echolalia [Unknown]
  - Decreased appetite [Unknown]
  - Aphagia [Unknown]
  - Cough [Unknown]
  - Chills [Unknown]
  - Pain [Unknown]
  - Coma [Unknown]
  - Depressed level of consciousness [Unknown]
  - Pyrexia [Unknown]
  - Decreased appetite [Unknown]
  - Hyponatraemia [Unknown]
  - Hypovolaemia [Unknown]
  - Deafness neurosensory [Unknown]
  - Intestinal obstruction [Unknown]
  - Thrombocytopenia [Unknown]
  - Transfusion [Unknown]
  - Dialysis [Unknown]
  - Renal tubular necrosis [Unknown]
  - Type 2 diabetes mellitus [Unknown]
  - Hypertension [Unknown]
  - Dyslipidaemia [Unknown]
  - Basal ganglia stroke [Unknown]
  - Candida infection [Unknown]
  - Adverse event [Unknown]
  - Adrenal insufficiency [Unknown]
  - Tongue discolouration [Unknown]
